FAERS Safety Report 4922595-1 (Version None)
Quarter: 2006Q1

REPORT INFORMATION
  Report Type: 
  Country: None (occurrence: None)
  Receive Date: 20060224
  Receipt Date: 20060213
  Transmission Date: 20060701
  Serious: Yes (Other)
  Sender: FDA-Public Use
  Company Number: GB-GLAXOSMITHKLINE-B0411195A

PATIENT
  Age: 18 Year
  Sex: Female

DRUGS (2)
  1. LAMICTAL [Suspect]
     Route: 048
     Dates: start: 20050501
  2. DIANETTE [Suspect]
     Indication: ACNE
     Route: 048

REACTIONS (3)
  - DROOLING [None]
  - DRUG INTERACTION [None]
  - EPILEPSY [None]
